FAERS Safety Report 8837027 (Version 1)
Quarter: 2012Q4

REPORT INFORMATION
  Report Type: Report from Study
  Country: DE (occurrence: DE)
  Receive Date: 20121012
  Receipt Date: 20121012
  Transmission Date: 20130627
  Serious: Yes (Death)
  Sender: FDA-Public Use
  Company Number: DE-PFIZER INC-8-98310-158A

PATIENT
  Age: 48 Year
  Sex: Female
  Weight: 98 kg

DRUGS (37)
  1. TAZOBAC [Suspect]
     Dosage: 4.5 gm three times daily
     Route: 042
     Dates: start: 19970826, end: 19970905
  2. OXAZEPAM [Suspect]
     Indication: SLEEP DISORDER
     Dosage: 10 mg daily
     Route: 048
     Dates: start: 19970822, end: 19970919
  3. NOVAMINSULFON-RATIOPHARM [Suspect]
     Dosage: 2 gm daily
     Route: 042
     Dates: start: 19970910, end: 19970911
  4. ZOVIRAX [Concomitant]
     Dosage: UNK
     Route: 042
     Dates: start: 19970919, end: 19970919
  5. ZOVIRAX [Concomitant]
     Dosage: UNK
     Route: 065
     Dates: start: 19970919, end: 19970919
  6. ZOVIRAX [Concomitant]
     Dosage: UNK
     Route: 048
     Dates: start: 19970822, end: 19970919
  7. ZOVIRAX (ACICLOVIR SODIUM) [Concomitant]
     Dosage: UNK
     Route: 042
     Dates: start: 19970919, end: 19970919
  8. ZOVIRAX (ACICLOVIR SODIUM) [Concomitant]
     Dosage: UNK
     Route: 065
     Dates: start: 19970919, end: 19970919
  9. ZOVIRAX (ACICLOVIR SODIUM) [Concomitant]
     Dosage: UNK
     Route: 048
     Dates: start: 19970822, end: 19970919
  10. ZYLORIC (ALLOPURINOL) [Concomitant]
     Dosage: UNK
     Route: 048
     Dates: start: 19970822, end: 19970825
  11. AMPHO-MORONAL [Concomitant]
     Dosage: UNK
     Route: 045
     Dates: start: 19970822, end: 19970919
  12. AMPHO-MORONAL [Concomitant]
     Dosage: UNK
     Route: 065
     Dates: start: 19970822, end: 19970919
  13. AMPHO-MORONAL [Concomitant]
     Dosage: UNK
     Route: 042
     Dates: start: 19970822, end: 19970830
  14. AMPHO-MORONAL [Concomitant]
     Dosage: UNK
     Route: 048
     Dates: start: 19970826, end: 19970829
  15. AMPHOTERICIN B [Concomitant]
     Dosage: UNK
     Route: 045
     Dates: start: 19970822, end: 19970919
  16. AMPHOTERICIN B [Concomitant]
     Dosage: UNK
     Route: 065
     Dates: start: 19970822, end: 19970919
  17. AMPHOTERICIN B [Concomitant]
     Dosage: UNK
     Route: 042
     Dates: start: 19970822, end: 19970830
  18. AMPHOTERICIN B [Concomitant]
     Dosage: UNK
     Route: 048
     Dates: start: 19970826, end: 19970829
  19. FORTUM [Concomitant]
     Dosage: UNK
     Route: 042
     Dates: start: 19970910, end: 19970918
  20. CIPROBAY [Concomitant]
     Dosage: UNK
     Route: 042
     Dates: start: 19970909, end: 19970917
  21. CIPROBAY [Concomitant]
     Dosage: UNK
     Route: 048
     Dates: start: 19970822, end: 19970826
  22. ENDOXAN [Concomitant]
     Dosage: UNK
     Route: 042
     Dates: start: 19970823, end: 19970824
  23. DOPAMINE [Concomitant]
     Dosage: UNK
     Route: 042
     Dates: start: 19970901, end: 19970919
  24. DIFLUCAN (FLUCONAZOL) [Concomitant]
     Dosage: UNK
     Route: 048
     Dates: start: 19970917, end: 19970918
  25. DIFLUCAN (FLUCONAZOL) [Concomitant]
     Dosage: UNK
     Route: 042
     Dates: start: 19970830, end: 19970916
  26. LASIX [Concomitant]
     Dosage: UNK
     Route: 042
     Dates: start: 19970822, end: 19970919
  27. INSULIN [Concomitant]
     Dosage: UNK
     Route: 042
     Dates: start: 19970902, end: 19970919
  28. SEMPERA [Concomitant]
     Dosage: UNK
     Route: 048
     Dates: start: 19970909, end: 19970919
  29. MERONEM [Concomitant]
     Dosage: UNK
     Route: 065
     Dates: start: 19970905, end: 19970909
  30. UROMITEXAN [Concomitant]
     Dosage: UNK
     Route: 042
     Dates: start: 19970823, end: 19970826
  31. NOVAMINSULFONICUM (METAMIZOLE) [Concomitant]
     Dosage: UNK
     Route: 042
     Dates: start: 19970910, end: 19970911
  32. PARACETAMOL [Concomitant]
     Dosage: UNK
     Route: 048
     Dates: start: 19970905, end: 19970910
  33. LAMISIL (TERBINAFIN) [Concomitant]
     Dosage: UNK
     Route: 061
     Dates: start: 19970822, end: 19970823
  34. VANCOMYCIN ^LEDERLE^ [Concomitant]
     Dosage: UNK
     Route: 048
     Dates: start: 19970907, end: 19970910
  35. VANCOMYCIN ^LEDERLE^ [Concomitant]
     Dosage: UNK
     Route: 042
     Dates: start: 19970828, end: 19970916
  36. ISOPTIN (VERAPAMIL) [Concomitant]
     Dosage: UNK
     Route: 048
     Dates: start: 19970822, end: 19970910
  37. ALL OTHER THERAPEUTIC PRODUCTS [Concomitant]
     Dosage: UNK
     Route: 042
     Dates: start: 19970826, end: 19970826

REACTIONS (5)
  - Toxic epidermal necrolysis [Fatal]
  - Rash maculo-papular [Fatal]
  - Cardiac failure [Fatal]
  - Renal failure [Fatal]
  - Sepsis [Fatal]
